FAERS Safety Report 14284030 (Version 2)
Quarter: 2017Q4

REPORT INFORMATION
  Report Type: Spontaneous
  Country: US (occurrence: US)
  Receive Date: 20171214
  Receipt Date: 20171229
  Transmission Date: 20180321
  Serious: Yes (Other)
  Sender: FDA-Public Use
  Company Number: US-AMGEN-USASP2017183136

PATIENT
  Age: 63 Year
  Sex: Female

DRUGS (1)
  1. REPATHA [Suspect]
     Active Substance: EVOLOCUMAB
     Indication: BLOOD CHOLESTEROL ABNORMAL
     Dosage: UNK
     Route: 065

REACTIONS (20)
  - Groin pain [Not Recovered/Not Resolved]
  - Feeling abnormal [Unknown]
  - Gait disturbance [Unknown]
  - Loss of personal independence in daily activities [Unknown]
  - Myalgia [Not Recovered/Not Resolved]
  - Back pain [Not Recovered/Not Resolved]
  - Neck pain [Not Recovered/Not Resolved]
  - Nerve compression [Unknown]
  - Muscle spasms [Unknown]
  - Nasal congestion [Unknown]
  - Headache [Unknown]
  - Arthroscopy [Unknown]
  - Weight bearing difficulty [Unknown]
  - Medial tibial stress syndrome [Not Recovered/Not Resolved]
  - Asthenia [Unknown]
  - Musculoskeletal pain [Not Recovered/Not Resolved]
  - Quality of life decreased [Unknown]
  - Fatigue [Unknown]
  - Bursitis [Unknown]
  - Arthralgia [Not Recovered/Not Resolved]
